APPROVED DRUG PRODUCT: HYDROCODONE BITARTRATE AND ACETAMINOPHEN
Active Ingredient: ACETAMINOPHEN; HYDROCODONE BITARTRATE
Strength: 300MG;5MG
Dosage Form/Route: TABLET;ORAL
Application: A202214 | Product #004 | TE Code: AA
Applicant: TRIS PHARMA INC
Approved: Mar 15, 2016 | RLD: No | RS: No | Type: RX